FAERS Safety Report 17597957 (Version 1)
Quarter: 2020Q1

REPORT INFORMATION
  Report Type: Spontaneous
  Country: None (occurrence: US)
  Receive Date: 20200330
  Receipt Date: 20200330
  Transmission Date: 20200409
  Serious: Yes (Other)
  Sender: FDA-Public Use
  Company Number: US-ORION CORPORATION ORION PHARMA-ENT 2020-0020

PATIENT
  Sex: Female

DRUGS (10)
  1. AMANTADINE. [Suspect]
     Active Substance: AMANTADINE HYDROCHLORIDE
     Route: 065
  2. PRAMIPEXOLE. [Suspect]
     Active Substance: PRAMIPEXOLE
     Indication: PARKINSON^S DISEASE
     Route: 065
  3. AMANTADINE. [Suspect]
     Active Substance: AMANTADINE HYDROCHLORIDE
     Indication: PARKINSON^S DISEASE
     Route: 065
  4. SELEGILINE [Suspect]
     Active Substance: SELEGILINE
     Indication: PARKINSON^S DISEASE
     Route: 065
  5. ROPINIROLE. [Suspect]
     Active Substance: ROPINIROLE
     Indication: PARKINSON^S DISEASE
     Route: 065
  6. CARBIDOPA-LEVODOPA [Suspect]
     Active Substance: CARBIDOPA\LEVODOPA
     Indication: PARKINSON^S DISEASE
     Dosage: STRENGTH: 25/100
     Route: 065
  7. RASAGILINE. [Suspect]
     Active Substance: RASAGILINE
     Indication: PARKINSON^S DISEASE
     Route: 065
  8. ENTACAPONE. [Suspect]
     Active Substance: ENTACAPONE
     Indication: PARKINSON^S DISEASE
     Route: 065
  9. PRAMIPEXOLE. [Suspect]
     Active Substance: PRAMIPEXOLE
     Route: 065
  10. ENTACAPONE. [Suspect]
     Active Substance: ENTACAPONE
     Dosage: MORNING
     Route: 065

REACTIONS (3)
  - On and off phenomenon [Unknown]
  - Drug ineffective [Unknown]
  - Freezing phenomenon [Recovering/Resolving]
